FAERS Safety Report 11807787 (Version 1)
Quarter: 2015Q4

REPORT INFORMATION
  Report Type: Spontaneous
  Country: IT (occurrence: IT)
  Receive Date: 20151207
  Receipt Date: 20151207
  Transmission Date: 20160305
  Serious: Yes (Hospitalization)
  Sender: FDA-Public Use
  Company Number: IT-TEVA-613078ACC

PATIENT
  Age: 73 Year
  Sex: Male
  Weight: 65 kg

DRUGS (12)
  1. AZITHROMYCIN [Suspect]
     Active Substance: AZITHROMYCIN ANHYDROUS
     Indication: PRODUCTIVE COUGH
     Dosage: 500 MILLIGRAM DAILY; 500 MG DAILY
     Route: 048
     Dates: start: 20150925, end: 20150927
  2. MIRAPEXIN [Concomitant]
     Active Substance: PRAMIPEXOLE
     Indication: PRODUCT USED FOR UNKNOWN INDICATION
  3. REPAGLINIDE. [Concomitant]
     Active Substance: REPAGLINIDE
     Indication: PRODUCT USED FOR UNKNOWN INDICATION
     Dosage: 1.5 MG
     Route: 048
  4. FOLINA - 5 MG CAPSULE MOLLI [Concomitant]
     Indication: PRODUCT USED FOR UNKNOWN INDICATION
  5. FERRO-GRAD - 105 MG COMPRESSE A RILASCIO PROLUNGATO [Concomitant]
     Indication: PRODUCT USED FOR UNKNOWN INDICATION
     Dosage: 1 DF
     Route: 048
  6. CETIRIZINE [Concomitant]
     Active Substance: CETIRIZINE HYDROCHLORIDE
     Indication: PRODUCT USED FOR UNKNOWN INDICATION
     Dosage: 10 MG
     Route: 048
  7. ALLOPURINOL. [Concomitant]
     Active Substance: ALLOPURINOL
     Indication: PRODUCT USED FOR UNKNOWN INDICATION
     Dosage: 300 MG
     Route: 048
  8. TRITTICO - 60 MG/ML GOCCE ORALI SOLUZIONE [Concomitant]
     Active Substance: TRAZODONE HYDROCHLORIDE
     Indication: PRODUCT USED FOR UNKNOWN INDICATION
  9. BISOPROLOL HEMIFUMARATE [Concomitant]
     Active Substance: BISOPROLOL FUMARATE
     Indication: MYOCARDIAL ISCHAEMIA
     Dosage: 2.5 MG
     Route: 048
  10. SINTROM [Interacting]
     Active Substance: ACENOCOUMAROL
     Indication: CONGESTIVE CARDIOMYOPATHY
     Dosage: 1 MG AS NECESSARY
     Route: 048
     Dates: end: 20150930
  11. LUVION - 50 MG COMPRESSE [Concomitant]
     Indication: CONGESTIVE CARDIOMYOPATHY
     Dosage: 50 MG
     Route: 048
  12. SPIRIVA RESPIMAT - 2.5 MCG SOLUZIONE PER INALAZIONE [Concomitant]
     Indication: PRODUCT USED FOR UNKNOWN INDICATION
     Dosage: 1 DF

REACTIONS (3)
  - Epistaxis [Recovered/Resolved]
  - Hypocoagulable state [Recovered/Resolved]
  - Drug interaction [Recovered/Resolved]

NARRATIVE: CASE EVENT DATE: 20151001
